FAERS Safety Report 5296882-4 (Version None)
Quarter: 2007Q1

REPORT INFORMATION
  Report Type: 
  Country: None (occurrence: None)
  Receive Date: 20070201
  Receipt Date: 20061020
  Transmission Date: 20070707
  Serious: No
  Sender: FDA-Public Use
  Company Number: 2006PV023679

PATIENT
  Age: 58 Year
  Sex: Female
  Weight: 114.3065 kg

DRUGS (4)
  1. BYETTA [Suspect]
     Indication: DIABETES MELLITUS NON-INSULIN-DEPENDENT
     Dosage: 5 MCG, BID, SC
     Route: 058
     Dates: start: 20061017
  2. DEMEDEX [Concomitant]
  3. AVANDARYL [Concomitant]
  4. STARLIX [Concomitant]

REACTIONS (2)
  - DECREASED APPETITE [None]
  - WEIGHT INCREASED [None]
